FAERS Safety Report 6617599-7 (Version None)
Quarter: 2010Q1

REPORT INFORMATION
  Report Type: 
  Country: None (occurrence: None)
  Receive Date: 20100308
  Receipt Date: 20100225
  Transmission Date: 20100710
  Serious: Yes (Other)
  Sender: FDA-Public Use
  Company Number: JP-ASTRAZENECA-2010SE08855

PATIENT
  Age: 44 Year
  Sex: Male

DRUGS (3)
  1. DIPRIVAN [Suspect]
     Indication: SEDATION
     Route: 041
     Dates: start: 20060914, end: 20060917
  2. LEPETAN [Concomitant]
     Dosage: 0.12MG X 10
     Route: 041
     Dates: start: 20060914, end: 20060916
  3. GASTER [Concomitant]
     Dosage: 20MG X 2
     Route: 041
     Dates: start: 20060914, end: 20060917

REACTIONS (1)
  - EYE ROLLING [None]
